FAERS Safety Report 4736458-8 (Version None)
Quarter: 2005Q3

REPORT INFORMATION
  Report Type: 
  Country: None (occurrence: None)
  Receive Date: 20050808
  Receipt Date: 20050727
  Transmission Date: 20060218
  Serious: Yes (Other)
  Sender: FDA-Public Use
  Company Number: PHBS2005US10955

PATIENT
  Age: 33 Year
  Sex: Female

DRUGS (8)
  1. HYDRALAZINE [Suspect]
     Indication: HYPERTENSION
  2. NIFEDIPINE [Suspect]
     Indication: HYPERTENSION
  3. LABETALOL [Suspect]
  4. CALCIUM GLUCONATE [Concomitant]
  5. MULTI-VITAMINS [Concomitant]
  6. FOLIC ACID [Concomitant]
  7. IRON [Concomitant]
  8. CALCITRIOL [Concomitant]

REACTIONS (5)
  - CAESAREAN SECTION [None]
  - CERVICAL INCOMPETENCE [None]
  - DRUG EXPOSURE DURING PREGNANCY [None]
  - HYPERTENSION [None]
  - MEDICATION ERROR [None]
